FAERS Safety Report 20053624 (Version 1)
Quarter: 2021Q4

REPORT INFORMATION
  Report Type: Spontaneous
  Country: US (occurrence: None)
  Receive Date: 20211109
  Receipt Date: 20211109
  Transmission Date: 20220304
  Serious: No
  Sender: FDA-Public Use
  Company Number: None

PATIENT

DRUGS (2)
  1. ORENCIA [Suspect]
     Active Substance: ABATACEPT
  2. ORENCIA [Concomitant]
     Active Substance: ABATACEPT
     Dates: start: 20211109, end: 20211109

REACTIONS (1)
  - Pruritus [None]

NARRATIVE: CASE EVENT DATE: 20211109
